FAERS Safety Report 6840450-7 (Version None)
Quarter: 2010Q3

REPORT INFORMATION
  Report Type: 
  Country: None (occurrence: None)
  Receive Date: 20100714
  Receipt Date: 20100702
  Transmission Date: 20110219
  Serious: Yes (Death, Hospitalization)
  Sender: FDA-Public Use
  Company Number: BR-PFIZER INC-2010083399

PATIENT
  Age: 83 Year
  Sex: Male

DRUGS (1)
  1. VIAGRA [Suspect]
     Indication: ERECTILE DYSFUNCTION
     Dosage: 50 MG, 1X/DAY
     Route: 048
     Dates: start: 20081117

REACTIONS (2)
  - RESPIRATORY ARREST [None]
  - RESPIRATORY DISORDER [None]
